FAERS Safety Report 17584768 (Version 1)
Quarter: 2020Q1

REPORT INFORMATION
  Report Type: Spontaneous
  Country: AT (occurrence: AT)
  Receive Date: 20200326
  Receipt Date: 20200326
  Transmission Date: 20200409
  Serious: Yes (Other)
  Sender: FDA-Public Use
  Company Number: AT-ALVOGEN-2020-ALVOGEN-107943

PATIENT
  Age: 18081 Day
  Sex: Female

DRUGS (1)
  1. ATENOLOL. [Suspect]
     Active Substance: ATENOLOL
     Indication: HYPERTENSION
     Dosage: 50.0 MG UNKNOWN
     Route: 065
     Dates: start: 19900308

REACTIONS (3)
  - Arrhythmia [Recovered/Resolved]
  - Extrasystoles [Unknown]
  - Wrong technique in product usage process [Unknown]

NARRATIVE: CASE EVENT DATE: 20191106
